FAERS Safety Report 14646166 (Version 1)
Quarter: 2018Q1

REPORT INFORMATION
  Report Type: Spontaneous
  Country: US (occurrence: US)
  Receive Date: 20180316
  Receipt Date: 20180316
  Transmission Date: 20180509
  Serious: Yes (Other)
  Sender: FDA-Public Use
  Company Number: US-INGENUS PHARMACEUTICALS NJ, LLC-ING201803-000199

PATIENT
  Age: 47 Year
  Sex: Male

DRUGS (4)
  1. PROBENECID AND COLCHICINE [Suspect]
     Active Substance: COLCHICINE\PROBENECID
  2. PREDNISONE. [Concomitant]
     Active Substance: PREDNISONE
  3. AZITHROMYCIN ANHYDROUS. [Concomitant]
     Active Substance: AZITHROMYCIN ANHYDROUS
     Indication: UPPER RESPIRATORY TRACT INFECTION
  4. HYDROXYCHLOROQUINE [Concomitant]
     Active Substance: HYDROXYCHLOROQUINE
     Indication: POLYARTHRITIS

REACTIONS (4)
  - Gastric ulcer [Unknown]
  - Oesophagitis [Unknown]
  - Gastritis [Unknown]
  - Toxicity to various agents [Unknown]
